FAERS Safety Report 4270453-0 (Version None)
Quarter: 2004Q1

REPORT INFORMATION
  Report Type: 
  Country: None (occurrence: None)
  Receive Date: 20040114
  Receipt Date: 20030702
  Transmission Date: 20041129
  Serious: Yes (Other)
  Sender: FDA-Public Use
  Company Number: JP-GLAXOSMITHKLINE-B0303617A

PATIENT
  Age: 37 Year
  Sex: Female
  Weight: 36 kg

DRUGS (4)
  1. PAROXETINE HCL [Suspect]
     Indication: OBSESSIVE-COMPULSIVE DISORDER
     Dosage: 20MG PER DAY
     Route: 048
     Dates: start: 20030317, end: 20030519
  2. LITHIUM CARBONATE [Suspect]
     Route: 048
     Dates: end: 20030331
  3. LEVOMEPROMAZINE MALEATE [Suspect]
     Dosage: 50MG PER DAY
     Route: 048
  4. PEROSPIRONE [Suspect]
     Dosage: 12MG PER DAY
     Route: 048
     Dates: end: 20030724

REACTIONS (3)
  - HYPOTENSION [None]
  - INTENTIONAL SELF-INJURY [None]
  - SICK SINUS SYNDROME [None]
